FAERS Safety Report 6616784-8 (Version None)
Quarter: 2010Q1

REPORT INFORMATION
  Report Type: 
  Country: None (occurrence: None)
  Receive Date: 20100305
  Receipt Date: 20010723
  Transmission Date: 20100710
  Serious: Yes (Death, Hospitalization, Other)
  Sender: FDA-Public Use
  Company Number: US-SANOFI-AVENTIS-US90-05040

PATIENT
  Age: 66 Year
  Sex: Female

DRUGS (20)
  1. DOCETAXEL [Suspect]
     Indication: BREAST CANCER
     Route: 042
     Dates: start: 19980312, end: 19980312
  2. DOCETAXEL [Suspect]
     Route: 042
     Dates: start: 19980702, end: 19980702
  3. DOXORUBICIN [Suspect]
     Indication: BREAST CANCER
     Route: 042
     Dates: start: 19980312, end: 19980312
  4. DOXORUBICIN [Suspect]
     Route: 042
     Dates: start: 19980702, end: 19980702
  5. CYCLOPHOSPHAMIDE [Suspect]
     Indication: BREAST CANCER
     Route: 042
     Dates: start: 19980312, end: 19980312
  6. CYCLOPHOSPHAMIDE [Suspect]
     Route: 042
     Dates: start: 19980702, end: 19980702
  7. VALSARTAN [Concomitant]
     Route: 048
  8. SULFAMETHOXAZOLE AND TRIMETHOPRIM [Concomitant]
  9. COLCHICINE [Concomitant]
     Route: 048
     Dates: start: 20000622
  10. CAPTOPRIL [Concomitant]
     Route: 048
     Dates: start: 19990615
  11. FUROSEMIDE [Concomitant]
     Route: 048
     Dates: start: 19981022
  12. DIGOXIN [Concomitant]
     Route: 048
     Dates: start: 19981022
  13. ALLOPURINOL [Concomitant]
     Route: 048
     Dates: start: 20000626
  14. ISORDIL [Concomitant]
     Route: 048
     Dates: start: 19990615
  15. HYDRALAZINE HCL [Concomitant]
     Route: 048
     Dates: start: 19990615
  16. ASPIRIN [Concomitant]
     Dates: start: 20010228
  17. ENOXAPARIN SODIUM [Concomitant]
     Dates: start: 20010228
  18. HEPARIN [Concomitant]
  19. LOPRESSOR [Concomitant]
  20. TAMOXIFEN CITRATE [Concomitant]

REACTIONS (5)
  - ATRIAL FIBRILLATION [None]
  - CARDIAC FAILURE CONGESTIVE [None]
  - CONDITION AGGRAVATED [None]
  - DIVERTICULAR PERFORATION [None]
  - INTERSTITIAL LUNG DISEASE [None]
